FAERS Safety Report 7390431-2 (Version None)
Quarter: 2011Q2

REPORT INFORMATION
  Report Type: 
  Country: None (occurrence: None)
  Receive Date: 20110401
  Receipt Date: 20110324
  Transmission Date: 20111010
  Serious: Yes (Hospitalization, Other)
  Sender: FDA-Public Use
  Company Number: US-AMGEN-USASP2011016072

PATIENT
  Age: 72 Year
  Sex: Female

DRUGS (1)
  1. ENBREL [Suspect]
     Indication: RHEUMATOID ARTHRITIS
     Dosage: 50 MG, QWK
     Dates: start: 20010501

REACTIONS (8)
  - CARDIAC FAILURE CONGESTIVE [None]
  - JOINT RANGE OF MOTION DECREASED [None]
  - PULMONARY ARTERIAL HYPERTENSION [None]
  - HYPERTENSION [None]
  - RHEUMATOID ARTHRITIS [None]
  - ATRIAL FIBRILLATION [None]
  - GAIT DISTURBANCE [None]
  - ARTHRALGIA [None]
